FAERS Safety Report 6266092-2 (Version None)
Quarter: 2009Q3

REPORT INFORMATION
  Report Type: 
  Country: None (occurrence: None)
  Receive Date: 20090713
  Receipt Date: 20090701
  Transmission Date: 20100115
  Serious: Yes (Hospitalization)
  Sender: FDA-Public Use
  Company Number: SE-ELI_LILLY_AND_COMPANY-SE200907000311

PATIENT
  Sex: Male

DRUGS (3)
  1. OLANZAPINE [Suspect]
     Dosage: 30 MG, DAILY (1/D)
     Dates: start: 20090401
  2. OLANZAPINE [Suspect]
     Dosage: 40 MG, DAILY (1/D)
  3. LYRICA [Concomitant]

REACTIONS (5)
  - HOSPITALISATION [None]
  - LYMPHOCYTE COUNT DECREASED [None]
  - NEUTROPHIL COUNT DECREASED [None]
  - OVERDOSE [None]
  - WHITE BLOOD CELL COUNT DECREASED [None]
